FAERS Safety Report 23719536 (Version 2)
Quarter: 2024Q2

REPORT INFORMATION
  Report Type: Report from Study
  Country: ES (occurrence: ES)
  Receive Date: 20240408
  Receipt Date: 20240523
  Transmission Date: 20240716
  Serious: Yes (Other)
  Sender: FDA-Public Use
  Company Number: ES-PFIZER INC-202400071686

PATIENT
  Age: 60 Year
  Sex: Male

DRUGS (4)
  1. VORICONAZOLE [Suspect]
     Active Substance: VORICONAZOLE
     Indication: Fungal disease carrier
     Dosage: UNK
     Route: 048
  2. VORICONAZOLE [Suspect]
     Active Substance: VORICONAZOLE
     Indication: Scedosporium infection
  3. VORICONAZOLE [Concomitant]
     Active Substance: VORICONAZOLE
     Indication: Scedosporium infection
     Dosage: 80 MILLIGRAM, ONCE A DAY (40 MG, 2X/DAY, NEBULIZATION)
     Route: 065
  4. VORICONAZOLE [Concomitant]
     Active Substance: VORICONAZOLE
     Indication: Fungal disease carrier

REACTIONS (2)
  - Hepatotoxicity [Unknown]
  - Ocular toxicity [Unknown]
